FAERS Safety Report 9495661 (Version 4)
Quarter: 2013Q4

REPORT INFORMATION
  Report Type: Spontaneous
  Country: JP (occurrence: JP)
  Receive Date: 20130903
  Receipt Date: 20131002
  Transmission Date: 20140711
  Serious: Yes (Hospitalization, Other)
  Sender: FDA-Public Use
  Company Number: JP-PFIZER INC-2013233346

PATIENT
  Age: 64 Year
  Sex: Female
  Weight: 72 kg

DRUGS (6)
  1. CELECOX [Suspect]
     Indication: TEMPOROMANDIBULAR JOINT SYNDROME
     Dosage: 200 MG, 2X/DAY
     Route: 048
     Dates: start: 20130722, end: 20130726
  2. CELECOX [Suspect]
     Indication: CERVICOBRACHIAL SYNDROME
  3. CONIEL [Concomitant]
     Indication: HYPERTENSION
     Dosage: UNK
  4. ECARD COMBINATION [Concomitant]
     Indication: HYPERTENSION
     Dosage: UNK
  5. LIPIDIL [Concomitant]
     Indication: HYPERLIPIDAEMIA
     Dosage: UNK
  6. ACTOS [Concomitant]
     Indication: DIABETES MELLITUS
     Dosage: UNK

REACTIONS (7)
  - Prescribed overdose [Unknown]
  - Rash [Unknown]
  - Erythema [Unknown]
  - Blister [Unknown]
  - Pyrexia [Unknown]
  - Erythema multiforme [Recovering/Resolving]
  - Erythema nodosum [Recovering/Resolving]
